FAERS Safety Report 4525646-1 (Version None)
Quarter: 2004Q4

REPORT INFORMATION
  Report Type: 
  Country: None (occurrence: None)
  Receive Date: 20041210
  Receipt Date: 20041129
  Transmission Date: 20050328
  Serious: Yes (Hospitalization, Disabling, Other)
  Sender: FDA-Public Use
  Company Number: GXKR2004GB00458

PATIENT
  Age: 14 Year
  Sex: Female
  Weight: 66 kg

DRUGS (8)
  1. DIAZEPAM [Suspect]
     Indication: SEDATION
     Dosage: 10 MG, BID, ORAL
     Route: 048
     Dates: start: 20040820, end: 20040929
  2. DEPAKOTE [Suspect]
     Indication: MOOD ALTERED
     Dosage: ORAL
     Route: 048
     Dates: start: 20040901
  3. SERTRALINE HCL [Suspect]
     Indication: OBSESSIVE-COMPULSIVE DISORDER
     Dosage: 175 - 75 MG, ORAL
     Route: 048
     Dates: start: 20040508
  4. RISPERDAL [Suspect]
     Indication: PSYCHOTIC DISORDER
     Dosage: 37.5 MG, BIW, INTRAMUSCULAR
     Route: 030
     Dates: start: 20040611, end: 20041016
  5. OLANZAPINE [Concomitant]
  6. LORAZEPAM [Concomitant]
  7. OXYTETRACYCLINE [Concomitant]
  8. TOPICYCLINE (TETRACYCLINE HYDROCHLORIDE) [Concomitant]

REACTIONS (5)
  - CONSTIPATION [None]
  - HYPERPROLACTINAEMIA [None]
  - URINARY RETENTION [None]
  - URINARY TRACT INFECTION [None]
  - WEIGHT INCREASED [None]
